FAERS Safety Report 10460565 (Version 4)
Quarter: 2015Q2

REPORT INFORMATION
  Report Type: Report from Study
  Country: US (occurrence: US)
  Receive Date: 20140918
  Receipt Date: 20150515
  Transmission Date: 20150821
  Serious: Yes (Other)
  Sender: FDA-Public Use
  Company Number: US-ROCHE-1450686

PATIENT
  Age: 80 Year
  Sex: Female
  Weight: 57.39 kg

DRUGS (6)
  1. RITUXIMAB [Suspect]
     Active Substance: RITUXIMAB
     Indication: BASAL CELL CARCINOMA
  2. RITUXIMAB [Suspect]
     Active Substance: RITUXIMAB
     Indication: CHRONIC LYMPHOCYTIC LEUKAEMIA
  3. BENDAMUSTINE [Concomitant]
     Active Substance: BENDAMUSTINE
     Indication: CHRONIC LYMPHOCYTIC LEUKAEMIA
     Dosage: RECEIVED 5 CYCLES PRIOR TO THE EVENTS
     Route: 042
     Dates: start: 20120925, end: 20130213
  4. TREANDA [Concomitant]
     Active Substance: BENDAMUSTINE HYDROCHLORIDE
     Indication: CHRONIC LYMPHOCYTIC LEUKAEMIA
     Route: 042
     Dates: start: 20120925, end: 20130213
  5. RITUXIMAB [Suspect]
     Active Substance: RITUXIMAB
     Indication: SQUAMOUS CELL CARCINOMA
     Dosage: RECEIVED 5 CYCLES PRIOR TO THE EVENTS
     Route: 042
     Dates: start: 20120927, end: 20130211
  6. DEXAMETHASONE. [Concomitant]
     Active Substance: DEXAMETHASONE
     Indication: CHRONIC LYMPHOCYTIC LEUKAEMIA
     Dosage: RECEIVED 5 CYCLES PRIOR TO THE EVENTS
     Route: 042
     Dates: start: 20120927, end: 20130211

REACTIONS (4)
  - Adenocarcinoma of colon [Unknown]
  - Keratoacanthoma [Recovering/Resolving]
  - Basal cell carcinoma [Recovered/Resolved]
  - Squamous cell carcinoma [Recovered/Resolved]

NARRATIVE: CASE EVENT DATE: 20130129
